FAERS Safety Report 8777502 (Version 1)
Quarter: 2012Q4

REPORT INFORMATION
  Report Type: 
  Country: US (occurrence: US)
  Receive Date: 20120910
  Receipt Date: 20120910
  Transmission Date: 20130627
  Serious: No
  Sender: FDA-Public Use
  Company Number: US-BAYER-2012-093773

PATIENT
  Age: 42 Year
  Sex: Female
  Weight: 53.06 kg

DRUGS (7)
  1. BETASERON [Suspect]
     Dosage: 0.25 mg, QOD
     Route: 058
  2. LOTREL [Concomitant]
     Route: 048
  3. VITAMIN D [Concomitant]
     Dosage: 400 units, UNK
     Route: 048
  4. FISH OIL [Concomitant]
  5. CALCIUM VIT D [Concomitant]
  6. CALCIUM +VIT D [Concomitant]
     Route: 048
  7. AMPYRA [Concomitant]
     Dosage: 10 mg, UNK
     Route: 048

REACTIONS (1)
  - Paraesthesia [Unknown]
